FAERS Safety Report 20853702 (Version 1)
Quarter: 2022Q2

REPORT INFORMATION
  Report Type: Spontaneous
  Country: US (occurrence: None)
  Receive Date: 20220519
  Receipt Date: 20220519
  Transmission Date: 20220721
  Serious: Yes (Hospitalization)
  Sender: FDA-Public Use
  Company Number: None

PATIENT
  Age: 82 Year
  Sex: Male

DRUGS (1)
  1. ABIRATERONE [Suspect]
     Active Substance: ABIRATERONE
     Indication: Prostate cancer
     Dosage: 1000 MG DAILY ORAL?
     Route: 048
     Dates: start: 202109

REACTIONS (4)
  - Blood potassium decreased [None]
  - Aphonia [None]
  - Fall [None]
  - Spinal stenosis [None]

NARRATIVE: CASE EVENT DATE: 20220331
